FAERS Safety Report 7874259-2 (Version None)
Quarter: 2011Q4

REPORT INFORMATION
  Report Type: 
  Country: None (occurrence: None)
  Receive Date: 20111030
  Receipt Date: 20110517
  Transmission Date: 20120403
  Serious: Yes (Hospitalization)
  Sender: FDA-Public Use
  Company Number: US-AMGEN-USASP2011025591

PATIENT
  Age: 71 Year
  Sex: Male

DRUGS (1)
  1. ENBREL [Suspect]
     Indication: RHEUMATOID ARTHRITIS
     Dosage: UNK
     Dates: start: 20011022, end: 20020101

REACTIONS (3)
  - STREPTOCOCCAL INFECTION [None]
  - STAPHYLOCOCCAL INFECTION [None]
  - DEVICE RELATED INFECTION [None]
